FAERS Safety Report 6246649-5 (Version None)
Quarter: 2009Q2

REPORT INFORMATION
  Report Type: 
  Country: None (occurrence: None)
  Receive Date: 20090624
  Receipt Date: 20090624
  Transmission Date: 20091009
  Serious: Yes (Hospitalization)
  Sender: FDA-Public Use
  Company Number: None

PATIENT
  Sex: Female
  Weight: 89.4 kg

DRUGS (4)
  1. CYCLOPHOSPHAMIDE [Suspect]
     Indication: BREAST CANCER
     Dosage: 600MG/M2 Q3WEEKS X 12 WEEKS IV DRIP
     Route: 041
     Dates: start: 20090331, end: 20090609
  2. DOXORUBICIN HCL [Suspect]
     Dosage: 60MG/M2 Q3WEEKS X 12 WEEKS IV DRIP
     Route: 041
     Dates: start: 20090331, end: 20090609
  3. COLACE -DOCUSATE SODIUM- [Concomitant]
  4. SENNA [Concomitant]

REACTIONS (2)
  - PAIN [None]
  - VAGINAL ULCERATION [None]
